FAERS Safety Report 5647581-8 (Version None)
Quarter: 2008Q1

REPORT INFORMATION
  Report Type: 
  Country: None (occurrence: None)
  Receive Date: 20080228
  Receipt Date: 20080221
  Transmission Date: 20080703
  Serious: Yes (Death)
  Sender: FDA-Public Use
  Company Number: 2007US001131

PATIENT
  Age: 55 Year
  Sex: Female

DRUGS (8)
  1. PROGRAF [Suspect]
     Indication: LIVER TRANSPLANT
     Dosage: 2 MG,BID, ORAL
     Route: 048
     Dates: start: 20070421, end: 20070518
  2. MYCOPHENOLATE MOFETIL [Suspect]
     Indication: LIVER TRANSPLANT
     Dosage: 1 G, BID, ORAL
     Route: 048
     Dates: start: 20070421, end: 20070504
  3. SULFAMETHOXAZOLE AND TRIMETHOPRIM [Concomitant]
  4. ACTIGALL [Concomitant]
  5. BUMEX [Concomitant]
  6. PEPCID [Concomitant]
  7. FLEXERIL [Concomitant]
  8. NORCO (HYDROCODONE BITARTRATE) [Concomitant]

REACTIONS (7)
  - ANASTOMOTIC STENOSIS [None]
  - BONE MARROW FAILURE [None]
  - ENTEROCOCCAL SEPSIS [None]
  - GRAFT VERSUS HOST DISEASE [None]
  - INFLUENZA LIKE ILLNESS [None]
  - MULTI-ORGAN FAILURE [None]
  - PANCYTOPENIA [None]
